FAERS Safety Report 5977852-7 (Version None)
Quarter: 2008Q4

REPORT INFORMATION
  Report Type: 
  Country: None (occurrence: None)
  Receive Date: 20081203
  Receipt Date: 20081128
  Transmission Date: 20090506
  Serious: Yes (Death)
  Sender: FDA-Public Use
  Company Number: ES-SANOFI-SYNTHELABO-F01200801791

PATIENT
  Sex: Male

DRUGS (4)
  1. BEVACIZUMAB [Suspect]
     Dosage: 405 MG, ONCE EVERY TWO WEEKS
     Route: 042
     Dates: start: 20051103
  2. FOLINIC ACID [Suspect]
     Route: 042
     Dates: start: 20051103
  3. FLUOROURACIL [Suspect]
     Dosage: 628 MG GIVEN AS A BOLUS AND 940 MG AS A CONTINUOUS INFUSION TWICE EVERY TWO WEEKS
     Route: 042
     Dates: start: 20081103
  4. OXALIPLATIN [Suspect]
     Indication: COLON CANCER
     Route: 042
     Dates: start: 20051103

REACTIONS (1)
  - DEATH [None]
